FAERS Safety Report 7442842 (Version 5)
Quarter: 2013Q2

REPORT INFORMATION
  Report Type: Report from Study
  Country: JP (occurrence: JP)
  Receive Date: 20100628
  Receipt Date: 20130501
  Transmission Date: 20140414
  Serious: Yes (Death, Life-Threatening, Hospitalization, Disabling)
  Sender: FDA-Public Use
  Company Number: JP-BRISTOL-MYERS SQUIBB COMPANY-14825632

PATIENT
  Age: 10 Year
  Sex: Female
  Weight: 20.4 kg

DRUGS (32)
  1. SPRYCEL [Suspect]
     Indication: ACUTE LYMPHOCYTIC LEUKAEMIA RECURRENT
     Dosage: 07-20APR;01MAY-22MAY;29MAY-11JUN;20JUN-06JUL;17JUL-06AUG;14AUG-03SEP;11-24SEP. INCREASED TO 50MG/DAY
     Route: 048
     Dates: start: 20070329
  2. METHOTREXATE [Suspect]
     Indication: ACUTE LYMPHOCYTIC LEUKAEMIA RECURRENT
     Dosage: 15MG 12JUN-26NOV09. INTRATHECAL 12MG 5-5FEB10
     Route: 048
     Dates: start: 20090612, end: 20100205
  3. LEUKERIN [Suspect]
     Indication: ACUTE LYMPHOCYTIC LEUKAEMIA RECURRENT
     Dosage: 38MG/D - 12JUN09-01JUL09?20MG/D - 02JUL09-06JUL09?10MG/D - 07JUL09-08JUL09;10-18MG 04SEP-ONG
     Route: 048
     Dates: start: 20090612
  4. INTERFERON ALFA [Suspect]
     Indication: ACUTE LYMPHOCYTIC LEUKAEMIA
     Route: 058
     Dates: start: 20091207, end: 20100505
  5. PIPERACILLIN SODIUM [Concomitant]
     Indication: GASTRITIS
     Dosage: INJ
     Route: 042
     Dates: start: 20090318, end: 20090327
  6. FAMOTIDINE INJ [Concomitant]
     Indication: GASTRITIS
     Route: 042
     Dates: end: 20090428
  7. CEFPIROME SULFATE [Concomitant]
     Dosage: INJ; 2.1G/D - 12JUN09-22JUN09;1.8G - 09JUL-19JUL09
     Route: 042
     Dates: start: 20090612, end: 20090719
  8. PANIPENEM + BETAMIPRON [Concomitant]
     Dosage: INJ
     Route: 042
     Dates: start: 20090622, end: 20090626
  9. FOSFLUCONAZOLE [Concomitant]
     Dosage: INJ
     Route: 042
     Dates: start: 20090622, end: 20090630
  10. FUNGIZONE [Concomitant]
     Indication: PROPHYLAXIS
     Dosage: INJ?TAKEN ALSO IN ORAL ROUTE 4.5MG/DAY
     Route: 042
     Dates: start: 20090630, end: 20090717
  11. MEROPENEM [Concomitant]
     Dosage: MEROPENEM HYDRATE INJ
     Route: 042
     Dates: start: 20090719, end: 20090723
  12. VORICONAZOLE [Concomitant]
     Dosage: TABS; 100MG/DAY ORAL 28AUG-ONG
     Route: 042
     Dates: start: 20090717, end: 20090827
  13. CLOFARABINE [Concomitant]
     Indication: ACUTE LYMPHOCYTIC LEUKAEMIA
     Dosage: FORM: INJ
     Route: 042
     Dates: start: 20100416, end: 20100418
  14. CYCLOPHOSPHAMIDE [Concomitant]
     Indication: ACUTE LYMPHOCYTIC LEUKAEMIA
     Dosage: INJ. CYCLOPHOSPHAMIDE HYDRATE
     Route: 042
     Dates: start: 20100416, end: 20100418
  15. ETOPOSIDE [Concomitant]
     Indication: ACUTE LYMPHOCYTIC LEUKAEMIA
     Dosage: INJ
     Route: 042
     Dates: start: 20100416, end: 20100418
  16. HYDROCORTISONE [Concomitant]
     Indication: ACUTE LYMPHOCYTIC LEUKAEMIA
     Dosage: ROUTE: INTRAARTHECAL. FORM: INJ
     Route: 037
     Dates: start: 20100130, end: 20100130
  17. CYTARABINE [Concomitant]
     Indication: ACUTE LYMPHOCYTIC LEUKAEMIA
     Dosage: INJ. INTRARTHECAL . FROM 23-25MAR10 IV 2.2G 4 PER DAY
     Route: 042
     Dates: start: 20100219, end: 20100325
  18. L-ASPARAGINASE [Concomitant]
     Indication: ACUTE LYMPHOCYTIC LEUKAEMIA
     Dosage: INJ. 1 DF= 1500 UNIT.
     Route: 042
     Dates: start: 20100323, end: 20100325
  19. SULFAMETHOXAZOLE + TRIMETHOPRIM [Concomitant]
     Indication: PROPHYLAXIS
     Route: 048
  20. CANDESARTAN CILEXETIL [Concomitant]
     Indication: CARDIOMYOPATHY
     Dosage: FORM: TABS
     Route: 048
  21. CEFPIROME SULFATE [Concomitant]
     Dosage: .4G 4/DAY 27NOV-44DEC09, .6G 3/DAY 1-9FEB10 22-25FEB10, .75G 4/DAY 1-4APR10 18-22APR10. INJ
     Route: 042
     Dates: start: 20091015, end: 20100422
  22. MICAFUNGIN SODIUM [Concomitant]
     Indication: PROPHYLAXIS
     Dosage: ALSO 4-11DEC09 24FEB-15MAR10 23APR-14MAY10 23APR-14MAY10. INJ
     Route: 042
     Dates: start: 20091021, end: 20100514
  23. TAZOBACTAM SODIUM [Concomitant]
     Dosage: INJ
     Route: 042
     Dates: start: 20091117, end: 20091127
  24. PANIPENEM [Concomitant]
     Dosage: INJ.
     Route: 042
     Dates: start: 20091204, end: 20091214
  25. MEROPENEM [Concomitant]
     Dosage: FORM: INJ. ALSO 25FEB-12MAR10, 4 PER DAY 5-14APR10 23APR-2MAY10
     Route: 042
     Dates: start: 20100210, end: 20100502
  26. SULBACTAM SODIUM [Concomitant]
     Dosage: INJ
     Route: 042
     Dates: start: 20100313, end: 20100319
  27. FOSFLUCONAZOLE [Concomitant]
     Dosage: INJ
     Route: 042
     Dates: start: 20100418, end: 20100422
  28. CEFTAZIDIME [Concomitant]
     Dosage: HYDRATE. INJ
     Route: 042
     Dates: start: 20100502, end: 20100511
  29. LINEZOLID [Concomitant]
     Dosage: INJ
     Route: 042
     Dates: start: 20100502, end: 20100506
  30. TEICOPLANIN [Concomitant]
     Dosage: INJ
     Route: 042
     Dates: start: 20100506, end: 20100514
  31. BIAPENEM [Concomitant]
     Dosage: INJ
     Route: 042
     Dates: start: 20100511, end: 20100514
  32. PREDNISOLONE [Concomitant]
     Indication: ACUTE LYMPHOCYTIC LEUKAEMIA
     Dosage: INJECTION
     Route: 042
     Dates: start: 20100323, end: 20100325

REACTIONS (13)
  - Febrile neutropenia [Fatal]
  - Malignant neoplasm progression [Fatal]
  - White blood cell count decreased [Fatal]
  - Platelet count decreased [Fatal]
  - Neutrophil count decreased [Fatal]
  - Anaemia [Fatal]
  - Gastrointestinal haemorrhage [Recovered/Resolved]
  - Sepsis [Recovering/Resolving]
  - Systemic mycosis [Recovering/Resolving]
  - Bronchitis [Recovering/Resolving]
  - Transaminases increased [Recovering/Resolving]
  - Pleural effusion [Recovering/Resolving]
  - Generalised oedema [Recovering/Resolving]
